FAERS Safety Report 8330209-6 (Version None)
Quarter: 2012Q2

REPORT INFORMATION
  Report Type: 
  Country: None (occurrence: None)
  Receive Date: 20120502
  Receipt Date: 20120423
  Transmission Date: 20120825
  Serious: Yes (Other)
  Sender: FDA-Public Use
  Company Number: PHHY2012US034939

PATIENT
  Sex: Female

DRUGS (17)
  1. ZANTAC [Suspect]
  2. CODEINE [Suspect]
  3. TOPAMAX [Suspect]
     Indication: MIGRAINE
  4. EFFEXOR [Suspect]
  5. NAPROXEN (ALEVE) [Suspect]
  6. MAXALT [Suspect]
     Indication: MIGRAINE
  7. PROZAC [Suspect]
  8. TYLENOL (CAPLET) [Suspect]
  9. PAXIL [Suspect]
  10. LORTAB [Suspect]
  11. BUFFERIN [Suspect]
     Indication: MIGRAINE
  12. SERZONE [Suspect]
  13. IBUPROFEN (ADVIL) [Suspect]
  14. LEXAPRO [Suspect]
  15. INDERAL [Suspect]
  16. ASPIRIN [Suspect]
  17. MORPHINE [Suspect]

REACTIONS (16)
  - INCORRECT DRUG ADMINISTRATION DURATION [None]
  - ABORTION SPONTANEOUS [None]
  - BLOOD CHOLESTEROL INCREASED [None]
  - MICTURITION URGENCY [None]
  - INCORRECT DOSE ADMINISTERED [None]
  - SUICIDAL IDEATION [None]
  - CRYING [None]
  - PANIC ATTACK [None]
  - DRUG INEFFECTIVE [None]
  - BLOOD GLUCOSE INCREASED [None]
  - MATERNAL EXPOSURE DURING PREGNANCY [None]
  - GASTRIC DISORDER [None]
  - MIGRAINE [None]
  - BLOOD PRESSURE INCREASED [None]
  - WEIGHT INCREASED [None]
  - VOMITING [None]
